FAERS Safety Report 7902019-2 (Version None)
Quarter: 2011Q4

REPORT INFORMATION
  Report Type: 
  Country: None (occurrence: None)
  Receive Date: 20111108
  Receipt Date: 20111028
  Transmission Date: 20120403
  Serious: Yes (Congenital Anomaly)
  Sender: FDA-Public Use
  Company Number: US-GLAXOSMITHKLINE-A0950489A

PATIENT
  Sex: Female

DRUGS (3)
  1. APAP TAB [Concomitant]
     Route: 064
  2. LOVENOX [Concomitant]
     Indication: FACTOR V LEIDEN MUTATION
     Route: 064
  3. PAXIL [Suspect]
     Indication: PRODUCT USED FOR UNKNOWN INDICATION
     Dosage: 40MG UNKNOWN
     Route: 064

REACTIONS (3)
  - LIGAMENT DISORDER [None]
  - LIGAMENT LAXITY [None]
  - FOETAL EXPOSURE DURING PREGNANCY [None]
